FAERS Safety Report 8781443 (Version 2)
Quarter: 2012Q4

REPORT INFORMATION
  Report Type: 
  Country: US (occurrence: US)
  Receive Date: 20120913
  Receipt Date: 20120927
  Transmission Date: 20130627
  Serious: Yes (Other)
  Sender: FDA-Public Use
  Company Number: US-009507513-1208USA004257

PATIENT
  Age: 58 None
  Sex: Female
  Weight: 90.7 kg

DRUGS (7)
  1. VICTRELIS [Suspect]
     Indication: HEPATITIS C
     Dosage: 4 cap / 8 hour with food
     Route: 048
     Dates: start: 20120720
  2. REBETOL [Suspect]
     Indication: HEPATITIS C
     Dosage: UNK mg, UNK
     Route: 048
     Dates: start: 20120622
  3. PEG-INTRON [Suspect]
     Indication: HEPATITIS C
     Dosage: 150 micrograms/0.5ml
     Route: 058
     Dates: start: 20120622
  4. OMEPRAZOLE [Concomitant]
     Dosage: UNK mg, UNK
  5. HYDROCHLOROTHIAZIDE (+) LISINOPRIL [Concomitant]
     Dosage: UNK
  6. AMLODIPINE BESYLATE (+) BENAZEPRIL HYDROCHLORIDE [Concomitant]
     Dosage: UNK
  7. IBUPROFEN [Concomitant]
     Dosage: UNK

REACTIONS (12)
  - Aphasia [Unknown]
  - Injection site bruising [Unknown]
  - Hypoaesthesia [Recovered/Resolved]
  - Eating disorder [Unknown]
  - Full blood count decreased [Recovered/Resolved]
  - Dehydration [Unknown]
  - Weight decreased [Unknown]
  - Dysgeusia [Unknown]
  - Fatigue [Unknown]
  - Vomiting [Unknown]
  - Asthenia [Unknown]
  - Fatigue [Unknown]
